FAERS Safety Report 6793548-6 (Version None)
Quarter: 2010Q2

REPORT INFORMATION
  Report Type: 
  Country: None (occurrence: None)
  Receive Date: 20100624
  Receipt Date: 20081220
  Transmission Date: 20101027
  Serious: No
  Sender: FDA-Public Use
  Company Number: US-PFIZER INC-2008097398

PATIENT
  Sex: Female
  Weight: 63.636 kg

DRUGS (6)
  1. XALATAN [Suspect]
     Indication: GLAUCOMA
     Dosage: UNK
     Dates: start: 20040101
  2. TRAVATAN [Suspect]
     Indication: GLAUCOMA
     Dosage: UNK
  3. BENICAR [Concomitant]
     Indication: HYPERTENSION
  4. ZYRTEC [Concomitant]
     Indication: HYPERSENSITIVITY
  5. THEOPHYLLINE [Concomitant]
     Indication: ASTHMA
  6. RESTORIL [Concomitant]
     Indication: SLEEP DISORDER

REACTIONS (5)
  - DRUG INTOLERANCE [None]
  - ERYTHEMA [None]
  - EYE IRRITATION [None]
  - HYPERSENSITIVITY [None]
  - OCULAR HYPERAEMIA [None]
